FAERS Safety Report 4761598-7 (Version None)
Quarter: 2005Q3

REPORT INFORMATION
  Report Type: 
  Country: None (occurrence: None)
  Receive Date: 20050906
  Receipt Date: 20041208
  Transmission Date: 20060218
  Serious: Yes (Other)
  Sender: FDA-Public Use
  Company Number: FR-GILEAD-2004-0007837

PATIENT
  Sex: Male
  Weight: 60 kg

DRUGS (7)
  1. HEPSERA [Suspect]
     Indication: HEPATITIS B
     Route: 048
     Dates: start: 20040726, end: 20041007
  2. ROVALCYTE [Suspect]
     Indication: ANTIVIRAL PROPHYLAXIS
     Route: 048
     Dates: start: 20040726, end: 20041007
  3. NEORAL [Concomitant]
     Indication: TRANSPLANT
     Route: 048
     Dates: start: 20040723
  4. CELLCEPT [Concomitant]
     Indication: TRANSPLANT
     Route: 048
     Dates: start: 20040721
  5. SOLU-MEDROL [Concomitant]
     Indication: TRANSPLANT
     Route: 048
     Dates: start: 20040721
  6. OMEPRAZOLE [Concomitant]
     Route: 048
     Dates: start: 20040721
  7. BACTRIM [Concomitant]
     Indication: INFECTION PROPHYLAXIS
     Route: 048
     Dates: start: 20040725

REACTIONS (4)
  - HAEMOGLOBIN DECREASED [None]
  - HEPATITIS B [None]
  - RHABDOMYOLYSIS [None]
  - VIRAEMIA [None]
